FAERS Safety Report 18458373 (Version 1)
Quarter: 2020Q4

REPORT INFORMATION
  Report Type: Spontaneous
  Country: US (occurrence: US)
  Receive Date: 20201103
  Receipt Date: 20201103
  Transmission Date: 20210114
  Serious: No
  Sender: FDA-Public Use
  Company Number: US-JNJFOC-20201044341

PATIENT
  Age: 47 Year
  Sex: Female

DRUGS (1)
  1. TYLENOL 8 HR ARTHRITIS PAIN [Suspect]
     Active Substance: ACETAMINOPHEN
     Indication: MUSCLE SPASMS
     Dosage: FOUR CAPLETS AT ONCE ON 18OCT2020 AND EIGHT CAPLETS AT ONCE AT 0830 ON 19OCT2020
     Route: 048
     Dates: start: 20201018

REACTIONS (5)
  - Faeces discoloured [Not Recovered/Not Resolved]
  - Body temperature increased [Recovered/Resolved]
  - Overdose [Unknown]
  - Headache [Not Recovered/Not Resolved]
  - Pain [Not Recovered/Not Resolved]

NARRATIVE: CASE EVENT DATE: 20201018
